FAERS Safety Report 9219820 (Version 2)
Quarter: 2018Q1

REPORT INFORMATION
  Report Type: Spontaneous
  Country: US (occurrence: US)
  Receive Date: 20130409
  Receipt Date: 20180104
  Transmission Date: 20180509
  Serious: Yes (Hospitalization, Other)
  Sender: FDA-Public Use
  Company Number: US-009507513-1304USA001082

PATIENT
  Sex: Female

DRUGS (3)
  1. ALENDRONATE SODIUM. [Suspect]
     Active Substance: ALENDRONATE SODIUM
     Indication: OSTEOPOROSIS
     Dosage: 70 MG, QD
     Route: 048
     Dates: start: 20090211
  2. FOSAMAX [Suspect]
     Active Substance: ALENDRONATE SODIUM
     Indication: OSTEOPOROSIS
     Dosage: 70 MG, QW
     Route: 048
     Dates: start: 20030717, end: 200703
  3. FOSAMAX PLUS D [Suspect]
     Active Substance: ALENDRONATE SODIUM\CHOLECALCIFEROL
     Indication: OSTEOPOROSIS
     Dosage: 70/2800 MG, QW
     Route: 048
     Dates: start: 20070419, end: 200901

REACTIONS (23)
  - Fall [Unknown]
  - Spinal disorder [Unknown]
  - Incisional hernia [Unknown]
  - Borderline glaucoma [Unknown]
  - Asthenia [Unknown]
  - Dizziness [Unknown]
  - Musculoskeletal pain [Unknown]
  - Pain in extremity [Unknown]
  - Back pain [Unknown]
  - Arthralgia [Unknown]
  - Large intestine polyp [Unknown]
  - Asthma-chronic obstructive pulmonary disease overlap syndrome [Unknown]
  - Temporomandibular joint syndrome [Unknown]
  - Sarcoidosis [Unknown]
  - Diabetic dyslipidaemia [Unknown]
  - Dyspnoea [Unknown]
  - Femur fracture [Unknown]
  - Rhinitis [Unknown]
  - Back pain [Recovering/Resolving]
  - Type 2 diabetes mellitus [Unknown]
  - Intervertebral disc degeneration [Unknown]
  - Gastrooesophageal reflux disease [Unknown]
  - Haematuria [Unknown]

NARRATIVE: CASE EVENT DATE: 20040818
